FAERS Safety Report 19747702 (Version 1)
Quarter: 2021Q3

REPORT INFORMATION
  Report Type: Spontaneous
  Country: CA (occurrence: CA)
  Receive Date: 20210825
  Receipt Date: 20210825
  Transmission Date: 20211014
  Serious: Yes (Other)
  Sender: FDA-Public Use
  Company Number: CA-009507513-1809CAN005383

PATIENT
  Age: 65 Year
  Sex: Female
  Weight: 74.8 kg

DRUGS (8)
  1. ASA [Concomitant]
     Active Substance: ASPIRIN
     Dosage: 1 TABLET 1 TIME DAILY FOR 100 DAYS
  2. CLOPIDROGEL SANDOZ [Concomitant]
     Active Substance: CLOPIDOGREL BISULFATE
     Dosage: 75 MILLIGRAM, 1 TIME DAILY; CONSIDER STOPPING AT A YEAR (I.E. FEB 2018)
     Dates: start: 201702
  3. VALSARTAN. [Concomitant]
     Active Substance: VALSARTAN
     Dosage: 80 MILLIGRAM, 1 TIME DAILY FOR 90 DAYS
  4. ZOSTAVAX [Suspect]
     Active Substance: VARICELLA-ZOSTER VIRUS STRAIN OKA/MERCK LIVE ANTIGEN
     Indication: PROPHYLAXIS
     Route: 030
  5. STERILE DILUENT (WATER) [Suspect]
     Active Substance: WATER
     Indication: PROPHYLAXIS
     Dosage: ONE TIME ONLY
     Route: 030
  6. INFLUVAC [Concomitant]
     Active Substance: INFLUENZA VIRUS VACCINE TRIVALENT TYPE A+B
  7. ROSUVASTATIN. [Concomitant]
     Active Substance: ROSUVASTATIN
     Dosage: 1 TABLET 1 TIME DAILY FOR 90 DAYS
  8. PNEUMOVAX 23 [Concomitant]
     Active Substance: PNEUMOCOCCAL VACCINE, POLYVALENT 23

REACTIONS (4)
  - Injection site erythema [Unknown]
  - Injection site dryness [Unknown]
  - Injection site pruritus [Unknown]
  - Injection site rash [Unknown]

NARRATIVE: CASE EVENT DATE: 20171023
